FAERS Safety Report 9683964 (Version 1)
Quarter: 2013Q4

REPORT INFORMATION
  Report Type: Spontaneous
  Country: US (occurrence: US)
  Receive Date: 20131112
  Receipt Date: 20131112
  Transmission Date: 20140711
  Serious: Yes (Other)
  Sender: FDA-Public Use
  Company Number: US-ACTAVIS-2013-19957

PATIENT
  Age: 52 Year
  Sex: Female

DRUGS (1)
  1. ZOLPIDEM TARTRATE (AELLC) [Suspect]
     Indication: SLEEP DISORDER
     Dosage: 12.5 MG, DAILY
     Route: 048
     Dates: start: 201308, end: 201309

REACTIONS (2)
  - Drug ineffective [Recovered/Resolved]
  - Convulsion [Recovered/Resolved]
